FAERS Safety Report 7591526-0 (Version None)
Quarter: 2011Q3

REPORT INFORMATION
  Report Type: 
  Country: None (occurrence: None)
  Receive Date: 20110701
  Receipt Date: 20110701
  Transmission Date: 20111222
  Serious: Yes (Hospitalization)
  Sender: FDA-Public Use
  Company Number: None

PATIENT
  Sex: Female
  Weight: 82.3 kg

DRUGS (3)
  1. CARBOPLATIN [Suspect]
     Dosage: 500 MG
     Dates: end: 20110531
  2. TAXOL [Suspect]
     Dosage: 384 MG
     Dates: end: 20110531
  3. BEVACIZUMAB (RHUMAB VEGF) [Suspect]
     Dosage: 1203 MG
     Dates: end: 20110531

REACTIONS (10)
  - PAIN [None]
  - SPINAL OSTEOARTHRITIS [None]
  - NEURALGIA [None]
  - NAUSEA [None]
  - HYPOMAGNESAEMIA [None]
  - VOMITING [None]
  - INTERVERTEBRAL DISC DEGENERATION [None]
  - SPINAL COLUMN STENOSIS [None]
  - HYPOKALAEMIA [None]
  - THERAPEUTIC RESPONSE DECREASED [None]
